FAERS Safety Report 4984440-8 (Version None)
Quarter: 2006Q2

REPORT INFORMATION
  Report Type: 
  Country: None (occurrence: None)
  Receive Date: 20060427
  Receipt Date: 20060424
  Transmission Date: 20061013
  Serious: Yes (Hospitalization)
  Sender: FDA-Public Use
  Company Number: BR-GLAXOSMITHKLINE-A0603276A

PATIENT
  Age: 1 Year
  Sex: Male
  Weight: 11 kg

DRUGS (3)
  1. CLAVULIN [Suspect]
     Indication: SINUSITIS
     Dosage: 3.5ML THREE TIMES PER DAY
     Route: 048
     Dates: start: 20060420, end: 20060423
  2. AEROLIN [Concomitant]
     Dosage: 2PUFF FOUR TIMES PER DAY
     Dates: start: 20060417, end: 20060422
  3. RANITIDINE [Concomitant]
     Dates: start: 20050101, end: 20060422

REACTIONS (2)
  - ANOREXIA [None]
  - DIARRHOEA [None]
